FAERS Safety Report 9000671 (Version 2)
Quarter: 2013Q1

REPORT INFORMATION
  Report Type: Spontaneous
  Country: US (occurrence: US)
  Receive Date: 20130107
  Receipt Date: 20130212
  Transmission Date: 20140127
  Serious: Yes (Hospitalization, Other)
  Sender: FDA-Public Use
  Company Number: US-PFIZER INC-2013004458

PATIENT
  Age: 58 Year
  Sex: Male
  Weight: 83.9 kg

DRUGS (5)
  1. CHANTIX [Suspect]
     Indication: SMOKING CESSATION THERAPY
     Dosage: UNK, 1X/DAY
     Route: 048
     Dates: start: 2012, end: 20121230
  2. PAXIL [Concomitant]
     Dosage: UNK, 1 TIME PER DAY
     Route: 048
  3. ATIVAN [Concomitant]
     Dosage: 1 MG, AT BEDTIME
     Route: 048
  4. TRAZODONE HYDROCHLORIDE [Concomitant]
     Dosage: 50 MG, AT BEDTIME
     Route: 048
  5. SIMVASTATIN [Concomitant]
     Dosage: 20 MG, 1X/DAY
     Route: 048

REACTIONS (3)
  - Suicidal ideation [Unknown]
  - Depression [Unknown]
  - Alcohol poisoning [Unknown]
